FAERS Safety Report 5846770-7 (Version None)
Quarter: 2008Q3

REPORT INFORMATION
  Report Type: 
  Country: None (occurrence: None)
  Receive Date: 20080815
  Receipt Date: 20080808
  Transmission Date: 20090109
  Serious: Yes (Hospitalization)
  Sender: FDA-Public Use
  Company Number: FR-MERCK-0808FRA00018

PATIENT
  Age: 59 Year
  Sex: Male

DRUGS (13)
  1. APREPITANT [Suspect]
     Indication: PROPHYLAXIS OF NAUSEA AND VOMITING
     Route: 048
     Dates: start: 20080409, end: 20080409
  2. APREPITANT [Suspect]
     Route: 048
     Dates: start: 20080410, end: 20080411
  3. APREPITANT [Suspect]
     Route: 048
     Dates: start: 20080430, end: 20080430
  4. APREPITANT [Suspect]
     Route: 048
     Dates: start: 20080501, end: 20080502
  5. GEMCITABINE [Concomitant]
     Indication: BLADDER CANCER
     Route: 042
     Dates: start: 20080409, end: 20080409
  6. GEMCITABINE [Concomitant]
     Route: 042
     Dates: start: 20080430, end: 20080430
  7. CISPLATIN [Concomitant]
     Indication: BLADDER CANCER
     Route: 042
     Dates: start: 20080409, end: 20080409
  8. CISPLATIN [Concomitant]
     Route: 042
     Dates: start: 20080430, end: 20080430
  9. ONDANSETRON HYDROCHLORIDE [Concomitant]
     Indication: PROPHYLAXIS OF NAUSEA AND VOMITING
     Route: 042
     Dates: start: 20080409, end: 20080430
  10. METHYLPREDNISOLONE [Suspect]
     Indication: PROPHYLAXIS OF NAUSEA AND VOMITING
     Route: 042
     Dates: start: 20080409, end: 20080430
  11. TRAMADOL HYDROCHLORIDE [Concomitant]
     Indication: PAIN
     Route: 048
  12. ZOLPIDEM TARTRATE [Concomitant]
     Indication: INSOMNIA
     Route: 048
  13. OXAZEPAM [Concomitant]
     Indication: ANXIETY
     Route: 048

REACTIONS (2)
  - HALLUCINATION, AUDITORY [None]
  - LOGORRHOEA [None]
